FAERS Safety Report 7468594-X (Version None)
Quarter: 2011Q2

REPORT INFORMATION
  Report Type: 
  Country: None (occurrence: None)
  Receive Date: 20110509
  Receipt Date: 20110426
  Transmission Date: 20111010
  Serious: No
  Sender: FDA-Public Use
  Company Number: US-BAYER-2011-036258

PATIENT
  Age: 78 Year
  Sex: Male

DRUGS (6)
  1. AMLODIPINE BESYLATE [Concomitant]
  2. JALYN [Concomitant]
  3. SIMVASTATIN [Concomitant]
  4. AVELOX [Suspect]
     Indication: INFECTION
     Dosage: 400 MG, QD
     Route: 048
     Dates: start: 20110417, end: 20110418
  5. GLYBURIDE [Concomitant]
  6. LISINOPRIL [Concomitant]

REACTIONS (4)
  - OEDEMA PERIPHERAL [None]
  - HYPERGLYCAEMIA [None]
  - BALANCE DISORDER [None]
  - CONFUSIONAL STATE [None]
